FAERS Safety Report 14508589 (Version 6)
Quarter: 2019Q3

REPORT INFORMATION
  Report Type: Report from Study
  Country: DE (occurrence: DE)
  Receive Date: 20180209
  Receipt Date: 20190727
  Transmission Date: 20191004
  Serious: Yes (Hospitalization)
  Sender: FDA-Public Use
  Company Number: DE-ROCHE-2062705

PATIENT
  Age: 71 Year
  Sex: Male
  Weight: 95 kg

DRUGS (12)
  1. CITALOPRAM [Concomitant]
     Active Substance: CITALOPRAM HYDROBROMIDE
     Indication: DEPRESSION
     Route: 048
  2. DOMINAL [PROTHIPENDYL HYDROCHLORIDE] [Concomitant]
     Active Substance: PROTHIPENDYL HYDROCHLORIDE
     Indication: SLEEP DISORDER
     Route: 048
  3. PRADAXA [Concomitant]
     Active Substance: DABIGATRAN ETEXILATE MESYLATE
  4. BISOPROLOL [Concomitant]
     Active Substance: BISOPROLOL
     Indication: HYPERTENSION
     Route: 048
  5. MOMEGALEN [Concomitant]
     Route: 003
     Dates: start: 20170925
  6. PANTOPRAZOL [PANTOPRAZOLE] [Concomitant]
     Active Substance: PANTOPRAZOLE
     Route: 048
  7. CLEXANE [Concomitant]
     Active Substance: ENOXAPARIN SODIUM
     Route: 058
     Dates: start: 20180130, end: 20180205
  8. APIXABAN [Concomitant]
     Active Substance: APIXABAN
     Indication: PROPHYLAXIS
     Route: 048
     Dates: start: 20181101, end: 20181112
  9. COBIMETINIB. [Suspect]
     Active Substance: COBIMETINIB
     Indication: MALIGNANT MELANOMA
     Route: 048
     Dates: start: 20180111, end: 20180120
  10. VEMURAFENIB. [Suspect]
     Active Substance: VEMURAFENIB
     Indication: MALIGNANT MELANOMA
     Dosage: STRENGTH 240 MG (4-0-4)
     Route: 048
     Dates: start: 20180111, end: 20180120
  11. CALCIVIT D [Concomitant]
     Indication: PROPHYLAXIS
     Route: 048
     Dates: start: 20180130
  12. THYROXIN [Concomitant]
     Active Substance: LEVOTHYROXINE
     Indication: AUTOIMMUNE THYROIDITIS
     Route: 048

REACTIONS (6)
  - Vomiting [Recovered/Resolved]
  - Pyrexia [Recovered/Resolved]
  - Enterococcal sepsis [Recovered/Resolved with Sequelae]
  - Atrial fibrillation [Recovered/Resolved]
  - Diarrhoea [Recovered/Resolved]
  - Drug eruption [Recovered/Resolved with Sequelae]

NARRATIVE: CASE EVENT DATE: 20180120
